FAERS Safety Report 13123946 (Version 5)
Quarter: 2017Q2

REPORT INFORMATION
  Report Type: Report from Study
  Country: FR (occurrence: FR)
  Receive Date: 20170118
  Receipt Date: 20170417
  Transmission Date: 20170830
  Serious: Yes (Death, Hospitalization)
  Sender: FDA-Public Use
  Company Number: FR-ROCHE-1880368

PATIENT
  Sex: Male
  Weight: 95 kg

DRUGS (22)
  1. STABLON [Concomitant]
     Active Substance: TIANEPTINE
     Indication: DEPRESSION
     Route: 048
  2. ORACILLINE [Concomitant]
     Active Substance: PENICILLIN V
     Indication: PROPHYLAXIS
     Route: 048
  3. ADENURIC [Concomitant]
     Active Substance: FEBUXOSTAT
     Dosage: INDICATION: DIURETIC
     Route: 048
  4. CYCLOPHOSPHAMIDE. [Concomitant]
     Active Substance: CYCLOPHOSPHAMIDE
  5. PREDNISOLONE. [Concomitant]
     Active Substance: PREDNISOLONE
  6. TERLIPRESSIN [Concomitant]
     Active Substance: TERLIPRESSIN
  7. IMOVANE [Concomitant]
     Active Substance: ZOPICLONE
     Indication: INSOMNIA
     Route: 048
  8. NOREPINEPHRINE. [Concomitant]
     Active Substance: NOREPINEPHRINE
  9. CORDARONE [Concomitant]
     Active Substance: AMIODARONE HYDROCHLORIDE
  10. LASILIX [Concomitant]
     Active Substance: FUROSEMIDE
     Route: 065
  11. CETIRIZINE [Concomitant]
     Active Substance: CETIRIZINE HYDROCHLORIDE
  12. DOXORUBICIN [Concomitant]
     Active Substance: DOXORUBICIN
  13. VINCRISTINE [Concomitant]
     Active Substance: VINCRISTINE
  14. CARBOPLATIN. [Concomitant]
     Active Substance: CARBOPLATIN
  15. VEMURAFENIB [Suspect]
     Active Substance: VEMURAFENIB
     Indication: NEOPLASM MALIGNANT
     Dosage: DATE OF LAST DOSE PRIOR TO SAE: 21/NOV/2016
     Route: 048
     Dates: start: 20161024
  16. ARA-C [Concomitant]
     Active Substance: CYTARABINE
  17. RITUXIMAB [Concomitant]
     Active Substance: RITUXIMAB
  18. LYSANXIA [Concomitant]
     Active Substance: PRAZEPAM
     Indication: ANXIETY
     Route: 048
  19. DEXAMETHASONE. [Concomitant]
     Active Substance: DEXAMETHASONE
  20. GRANOCYTE [Concomitant]
     Active Substance: LENOGRASTIM
  21. MICARDIS [Concomitant]
     Active Substance: TELMISARTAN
     Indication: HYPERTENSION
     Route: 048
  22. BURINEX [Concomitant]
     Active Substance: BUMETANIDE
     Dosage: INDICATION: DIURETIC
     Route: 048

REACTIONS (1)
  - Sinusitis fungal [Fatal]

NARRATIVE: CASE EVENT DATE: 20161201
